FAERS Safety Report 9684779 (Version 3)
Quarter: 2013Q4

REPORT INFORMATION
  Report Type: Spontaneous
  Country: DE (occurrence: DE)
  Receive Date: 20131112
  Receipt Date: 20131205
  Transmission Date: 20140711
  Serious: Yes (Hospitalization, Other)
  Sender: FDA-Public Use
  Company Number: DE-BAXTER-2013BAX043823

PATIENT
  Sex: Female

DRUGS (2)
  1. TISSUCOL DUO S 2ML IMMUNO [Suspect]
     Indication: VASCULAR GRAFT
     Route: 065
  2. TISSUCOL DUO S 2ML IMMUNO [Suspect]
     Indication: OFF LABEL USE

REACTIONS (7)
  - Vasospasm [Recovering/Resolving]
  - Venous occlusion [Recovering/Resolving]
  - Myocardial infarction [Not Recovered/Not Resolved]
  - Haemodynamic instability [Unknown]
  - Cardiac failure [Unknown]
  - Right ventricular dysfunction [Unknown]
  - Cardiac enzymes increased [Unknown]
